FAERS Safety Report 9770559 (Version 1)
Quarter: 2013Q4

REPORT INFORMATION
  Report Type: Spontaneous
  Country: US (occurrence: US)
  Receive Date: 20131218
  Receipt Date: 20131218
  Transmission Date: 20140711
  Serious: No
  Sender: FDA-Public Use
  Company Number: US-BAYER-2013-155023

PATIENT
  Age: 83 Year
  Sex: Female
  Weight: 57 kg

DRUGS (2)
  1. ALEVE CAPLET [Suspect]
     Indication: BACK PAIN
     Dosage: 1 DF, TID
     Route: 048
     Dates: start: 20131213
  2. LIPITOR [Concomitant]
     Dosage: UNK

REACTIONS (2)
  - Drug ineffective [None]
  - Drug ineffective [None]
